FAERS Safety Report 6530074-3 (Version None)
Quarter: 2010Q1

REPORT INFORMATION
  Report Type: 
  Country: None (occurrence: None)
  Receive Date: 20100107
  Receipt Date: 20100104
  Transmission Date: 20100710
  Serious: Yes (Hospitalization)
  Sender: FDA-Public Use
  Company Number: US-MERCK-1001USA00080

PATIENT
  Age: 60 Year
  Sex: Male

DRUGS (2)
  1. PRIMAXIN [Suspect]
     Indication: PNEUMONIA BACTERIAL
     Route: 051
     Dates: start: 20091231, end: 20100104
  2. PRIMAXIN [Suspect]
     Route: 051
     Dates: start: 20091231, end: 20100104

REACTIONS (2)
  - INJECTION SITE OEDEMA [None]
  - INJECTION SITE VESICLES [None]
